FAERS Safety Report 19153004 (Version 1)
Quarter: 2021Q2

REPORT INFORMATION
  Report Type: Spontaneous
  Country: US (occurrence: US)
  Receive Date: 20210419
  Receipt Date: 20210419
  Transmission Date: 20210717
  Serious: No
  Sender: FDA-Public Use
  Company Number: US-TEVA-2021-US-1899001

PATIENT
  Age: 58 Year
  Sex: Female

DRUGS (4)
  1. COPAXONE [Suspect]
     Active Substance: GLATIRAMER ACETATE
     Indication: PRODUCT USED FOR UNKNOWN INDICATION
     Dosage: FORM STRENGTH: UNIT UNKNOWN
     Route: 065
     Dates: start: 2007
  2. MODERNA COVID?19 VACCINE [Suspect]
     Active Substance: CX-024414
     Route: 065
     Dates: start: 20210210
  3. AUTOINJECTOR [DEVICE] [Suspect]
     Active Substance: DEVICE
     Route: 065
  4. MODERNA COVID?19 VACCINE [Suspect]
     Active Substance: CX-024414
     Route: 065

REACTIONS (2)
  - Injection site pain [Unknown]
  - Inappropriate schedule of product administration [Unknown]

NARRATIVE: CASE EVENT DATE: 2021
